FAERS Safety Report 9065895 (Version 1)
Quarter: 2013Q1

REPORT INFORMATION
  Report Type: Spontaneous
  Country: US (occurrence: US)
  Receive Date: 20130131
  Receipt Date: 20130131
  Transmission Date: 20140127
  Serious: No
  Sender: FDA-Public Use
  Company Number: US-ABBOTT-12P-163-1017405-00

PATIENT
  Age: 41 Year
  Sex: Female
  Weight: 55.84 kg

DRUGS (1)
  1. HUMIRA PEN [Suspect]
     Indication: PSORIASIS
     Dates: start: 201107

REACTIONS (3)
  - Incorrect dose administered [Unknown]
  - Injection site haemorrhage [Recovered/Resolved]
  - Injection site pain [Recovered/Resolved]
